FAERS Safety Report 21807774 (Version 1)
Quarter: 2023Q1

REPORT INFORMATION
  Report Type: Spontaneous
  Country: FR (occurrence: FR)
  Receive Date: 20230103
  Receipt Date: 20230103
  Transmission Date: 20230418
  Serious: Yes (Death)
  Sender: FDA-Public Use
  Company Number: FR-AMNEAL PHARMACEUTICALS-2022-AMRX-04244

PATIENT
  Age: 29 Year
  Sex: Male

DRUGS (8)
  1. TESTOSTERONE [Suspect]
     Active Substance: TESTOSTERONE
     Indication: Product used for unknown indication
     Dosage: 65-72 PG/MG
     Route: 065
  2. TESTOSTERONE PROPIONATE [Suspect]
     Active Substance: TESTOSTERONE PROPIONATE
     Indication: Product used for unknown indication
     Dosage: 930-691 PG/MG
     Route: 065
  3. TESTOSTERONE ISOCAPROATE [Suspect]
     Active Substance: TESTOSTERONE ISOCAPROATE
     Indication: Product used for unknown indication
     Dosage: (79 PG/MG-{ 5 PG/MG
     Route: 065
  4. NANDROLONE DECANOATE [Suspect]
     Active Substance: NANDROLONE DECANOATE
     Indication: Product used for unknown indication
     Dosage: 202-64 PG/MG
     Route: 065
  5. STANOZOLOL [Suspect]
     Active Substance: STANOZOLOL
     Indication: Product used for unknown indication
     Dosage: 575-670 PG/MG
     Route: 065
  6. TRENBOLONE [Suspect]
     Active Substance: TRENBOLONE
     Indication: Product used for unknown indication
     Dosage: 4 PG/MG
     Route: 065
  7. DROMOSTANOLONE [Suspect]
     Active Substance: DROMOSTANOLONE
     Indication: Product used for unknown indication
     Dosage: 112-30 PG/MG
     Route: 065
  8. DROMOSTANOLONE PROPIONATE [Suspect]
     Active Substance: DROMOSTANOLONE PROPIONATE
     Indication: Product used for unknown indication
     Dosage: 15-4 PG/MG
     Route: 065

REACTIONS (3)
  - Death [Fatal]
  - Poisoning [Fatal]
  - Drug abuse [Fatal]
